FAERS Safety Report 12388265 (Version 3)
Quarter: 2016Q3

REPORT INFORMATION
  Report Type: Spontaneous
  Country: JP (occurrence: JP)
  Receive Date: 20160520
  Receipt Date: 20160926
  Transmission Date: 20161109
  Serious: Yes (Other)
  Sender: FDA-Public Use
  Company Number: JP-009507513-1605JPN008979

PATIENT
  Age: 81 Year
  Sex: Female
  Weight: 37 kg

DRUGS (18)
  1. CERCINE [Concomitant]
     Active Substance: DIAZEPAM
     Indication: INSOMNIA
     Dosage: 2 MG, PRN
     Route: 048
  2. GASCON (DIMETHICONE) [Concomitant]
     Active Substance: DIMETHICONE
     Dosage: 1 TABLET, BID
     Route: 048
  3. GASMOTIN [Concomitant]
     Active Substance: MOSAPRIDE CITRATE
     Dosage: 5 MG, BID
     Route: 048
  4. SELBEX [Concomitant]
     Active Substance: TEPRENONE
     Dosage: 1 CAPSULE, PRN
     Route: 048
  5. DUROTEP [Concomitant]
     Active Substance: FENTANYL
     Dosage: AS NEEDED, DAILY DOSAGE UNKNOWN
     Route: 062
  6. SENNOSIDES. [Concomitant]
     Active Substance: SENNOSIDES
     Dosage: 4 TABLETS, PRN
     Route: 048
  7. LYRICA [Concomitant]
     Active Substance: PREGABALIN
     Dosage: 40 MG (15 MG AM AND 25 MG IN THE EVENING AS NEEDED)
     Route: 048
  8. GOODMIN [Concomitant]
     Active Substance: BROTIZOLAM
     Indication: INSOMNIA
     Dosage: 0.5 MG, QD
     Route: 048
  9. CONIEL [Concomitant]
     Active Substance: BENIDIPINE HYDROCHLORIDE
     Dosage: 2 MG, BID
     Route: 048
  10. CINAL [Concomitant]
     Active Substance: ASCORBIC ACID\CALCIUM PANTOTHENATE
     Dosage: 1 TABLET, BID
     Route: 048
  11. VESICARE [Concomitant]
     Active Substance: SOLIFENACIN SUCCINATE
     Dosage: 10 MG, QD
     Route: 048
  12. BELSOMRA [Suspect]
     Active Substance: SUVOREXANT
     Indication: INSOMNIA
     Dosage: 15 MG, QD
     Route: 048
     Dates: start: 20160127, end: 20160427
  13. NEXIUM [Concomitant]
     Active Substance: ESOMEPRAZOLE MAGNESIUM
     Dosage: 10 MG, BID
     Route: 048
  14. BLADDERON [Concomitant]
     Active Substance: FLAVOXATE
     Dosage: 1 DF, BID
     Route: 048
  15. VOLTAREN [Concomitant]
     Active Substance: DICLOFENAC SODIUM
     Dosage: 50 MG, PRN
     Route: 054
  16. DENOTAS CHEWABLE COMBINATION TABLETS [Concomitant]
     Dosage: 2 TABLETS, QD
     Route: 048
  17. VOLTAREN [Concomitant]
     Active Substance: DICLOFENAC SODIUM
     Dosage: 1 CAPSULE, PRN
     Route: 048
  18. BELSOMRA [Suspect]
     Active Substance: SUVOREXANT
     Dosage: PRESCRIPTION OF SUVOREXANT (BELSOMRA) FOR 14 DAYS, 15 MG, QD
     Route: 048
     Dates: start: 20160510

REACTIONS (2)
  - Cognitive disorder [Recovering/Resolving]
  - Delirium [Recovering/Resolving]

NARRATIVE: CASE EVENT DATE: 20160427
